FAERS Safety Report 8833122 (Version 4)
Quarter: 2015Q1

REPORT INFORMATION
  Report Type: Spontaneous
  Country: US (occurrence: US)
  Receive Date: 20121010
  Receipt Date: 20150212
  Transmission Date: 20150721
  Serious: Yes (Hospitalization, Other)
  Sender: FDA-Public Use
  Company Number: US-AMGEN-USASP2012063642

PATIENT
  Age: 71 Year
  Sex: Female

DRUGS (28)
  1. NEUPOGEN [Suspect]
     Active Substance: FILGRASTIM
     Indication: PRODUCT USED FOR UNKNOWN INDICATION
     Dosage: 180 MCG, UNK
     Route: 058
     Dates: start: 20010210
  2. PREVACID [Concomitant]
     Active Substance: LANSOPRAZOLE
     Dosage: 30 MG, 1 IN 1 D
     Route: 048
  3. LEVAQUIN [Concomitant]
     Active Substance: LEVOFLOXACIN
     Dosage: 500 MG, 1 IN 1 D
     Route: 048
  4. RITUXIMAB [Suspect]
     Active Substance: RITUXIMAB
     Indication: CHRONIC LYMPHOCYTIC LEUKAEMIA
     Dosage: 650 MG, 1 IN 1 WK
     Route: 042
  5. CHLORAMBUCIL [Concomitant]
     Active Substance: CHLORAMBUCIL
     Dosage: UNK
  6. CYTOXAN [Concomitant]
     Active Substance: CYCLOPHOSPHAMIDE
     Dosage: 1 G, UNK
  7. MEGACE [Concomitant]
     Active Substance: MEGESTROL ACETATE
     Dosage: UNK
  8. ZITHROMAX [Concomitant]
     Active Substance: AZITHROMYCIN DIHYDRATE
     Dosage: UNK
  9. RESTORIL                           /00393701/ [Concomitant]
     Dosage: UNK
  10. PERCOCET [Concomitant]
     Active Substance: ACETAMINOPHEN\OXYCODONE HYDROCHLORIDE
     Dosage: UNK
  11. PRILOSEC [Concomitant]
     Active Substance: OMEPRAZOLE MAGNESIUM
     Dosage: 250 MG, UNK
     Route: 048
  12. SYNTHROID [Concomitant]
     Active Substance: LEVOTHYROXINE SODIUM
     Dosage: UNK
  13. PAXIL [Concomitant]
     Active Substance: PAROXETINE HYDROCHLORIDE
     Dosage: UNK
  14. LOVENOX [Concomitant]
     Active Substance: ENOXAPARIN SODIUM
     Dosage: UNK
  15. BACTRIM [Concomitant]
     Active Substance: SULFAMETHOXAZOLE\TRIMETHOPRIM
     Dosage: UNK
  16. AMPHOTERICIN B. [Concomitant]
     Active Substance: AMPHOTERICIN B
     Indication: FUNGAL INFECTION
     Dosage: UNK
  17. ANZEMET [Concomitant]
     Active Substance: DOLASETRON MESYLATE
     Dosage: 100 MG, UNK
     Route: 048
  18. PREDNISONE. [Concomitant]
     Active Substance: PREDNISONE
     Dosage: UNK
  19. AUGMENTIN [Concomitant]
     Active Substance: AMOXICILLIN\CLAVULANATE POTASSIUM
     Dosage: UNK
  20. REGLAN [Concomitant]
     Active Substance: METOCLOPRAMIDE HYDROCHLORIDE
     Dosage: 4 IN 1 D
  21. CEFTRIAXONE SODIUM. [Suspect]
     Active Substance: CEFTRIAXONE SODIUM
     Indication: PRODUCT USED FOR UNKNOWN INDICATION
     Dosage: 1 G, 2 IN 1 D
     Route: 042
  22. VINCRISTINE [Concomitant]
     Active Substance: VINCRISTINE
     Dosage: UNK
  23. PROVENTIL                          /00139501/ [Concomitant]
     Dosage: UNK
  24. LEUKERAN [Concomitant]
     Active Substance: CHLORAMBUCIL
     Dosage: 2 MG, 1 IN 1 D
  25. MITOXANTRONE HYDROCHLORIDE. [Concomitant]
     Active Substance: MITOXANTRONE HYDROCHLORIDE
     Dosage: UNK
  26. SEPTRA [Concomitant]
     Active Substance: SULFAMETHOXAZOLE\TRIMETHOPRIM
     Dosage: UNK
  27. BIAXIN [Concomitant]
     Active Substance: CLARITHROMYCIN
     Dosage: UNK
  28. FLUDARABINE [Concomitant]
     Active Substance: FLUDARABINE PHOSPHATE
     Dosage: UNK

REACTIONS (29)
  - Neutropenia [Unknown]
  - Incontinence [Unknown]
  - Rash [Unknown]
  - Orthostatic hypotension [Unknown]
  - Decreased appetite [Unknown]
  - Tachycardia [Unknown]
  - Lymphadenopathy [Unknown]
  - Weight decreased [Unknown]
  - Insomnia [Unknown]
  - Oral fungal infection [Unknown]
  - Joint injury [Unknown]
  - Drug ineffective [Unknown]
  - Vomiting [Unknown]
  - Fatigue [Unknown]
  - Chest pain [Unknown]
  - Constipation [Unknown]
  - Abdominal pain [Unknown]
  - Pneumonia legionella [Unknown]
  - Hypophagia [Unknown]
  - Oral candidiasis [Unknown]
  - Hypoxia [Unknown]
  - Malaise [Unknown]
  - Pancytopenia [Unknown]
  - Abdominal pain upper [Unknown]
  - Pruritus [Unknown]
  - Nausea [Unknown]
  - Asthenia [Unknown]
  - Skin discolouration [Unknown]
  - Pyrexia [Unknown]

NARRATIVE: CASE EVENT DATE: 20010301
